FAERS Safety Report 10220964 (Version 3)
Quarter: 2014Q3

REPORT INFORMATION
  Report Type: Spontaneous
  Country: US (occurrence: None)
  Receive Date: 20140604
  Receipt Date: 20140801
  Transmission Date: 20150326
  Serious: Yes (Other)
  Sender: FDA-Public Use
  Company Number: 2014-US-006509

PATIENT
  Age: 40 Year
  Sex: Female
  Weight: 89.8 kg

DRUGS (3)
  1. XYREM [Suspect]
     Active Substance: SODIUM OXYBATE
     Indication: NARCOLEPSY
     Route: 048
     Dates: start: 200905, end: 200905
  2. RITALIN [Concomitant]
     Active Substance: METHYLPHENIDATE HYDROCHLORIDE
  3. ADDERALL [Concomitant]
     Active Substance: AMPHETAMINE ASPARTATE\AMPHETAMINE SULFATE\DEXTROAMPHETAMINE SACCHARATE\DEXTROAMPHETAMINE SULFATE
     Indication: NARCOLEPSY
     Dosage: PM
     Dates: end: 2012

REACTIONS (11)
  - Head injury [None]
  - Fall [None]
  - Dizziness [None]
  - Enuresis [None]
  - Fluid intake reduced [None]
  - Tongue biting [None]
  - Dehydration [None]
  - Seizure like phenomena [None]
  - Contusion [None]
  - Convulsion [None]
  - Drug tolerance [None]

NARRATIVE: CASE EVENT DATE: 2012
